FAERS Safety Report 6293035-8 (Version None)
Quarter: 2009Q3

REPORT INFORMATION
  Report Type: 
  Country: None (occurrence: None)
  Receive Date: 20090731
  Receipt Date: 20090717
  Transmission Date: 20100115
  Serious: Yes (Other)
  Sender: FDA-Public Use
  Company Number: NZ-PFIZER INC-2009241726

PATIENT

DRUGS (1)
  1. XALATAN [Suspect]

REACTIONS (4)
  - EYE IRRITATION [None]
  - EYE PAIN [None]
  - EYE SWELLING [None]
  - OCULAR HYPERAEMIA [None]
